FAERS Safety Report 16017244 (Version 1)
Quarter: 2019Q1

REPORT INFORMATION
  Report Type: Spontaneous
  Country: CH (occurrence: CH)
  Receive Date: 20190228
  Receipt Date: 20190228
  Transmission Date: 20190418
  Serious: Yes (Other)
  Sender: FDA-Public Use
  Company Number: CH-PFIZER INC-2019084058

PATIENT
  Sex: Female

DRUGS (3)
  1. TEMESTA [LORAZEPAM] [Suspect]
     Active Substance: LORAZEPAM
     Dosage: UNK
  2. TRIMIPRAMINE ZENTIVA [TRIMIPRAMINE MALEATE] [Suspect]
     Active Substance: TRIMIPRAMINE MALEATE
     Dosage: UNK
  3. ZOLPIDEM [Suspect]
     Active Substance: ZOLPIDEM\ZOLPIDEM TARTRATE
     Dosage: UNK

REACTIONS (3)
  - Dysphagia [Unknown]
  - Angioedema [Unknown]
  - Oropharyngeal pain [Unknown]
